FAERS Safety Report 8102552-7 (Version None)
Quarter: 2012Q1

REPORT INFORMATION
  Report Type: 
  Country: None (occurrence: None)
  Receive Date: 20120126
  Receipt Date: 20120112
  Transmission Date: 20120608
  Serious: Yes (Death)
  Sender: FDA-Public Use
  Company Number: 2012P1002481

PATIENT
  Sex: Female

DRUGS (4)
  1. FENTANYL [Suspect]
     Indication: PAIN
  2. FENTANYL [Suspect]
     Indication: PAIN
  3. FENTANYL-75 [Suspect]
     Indication: PAIN
  4. FENTANYL-100 [Suspect]
     Indication: PAIN

REACTIONS (1)
  - RESPIRATORY DEPRESSION [None]
